FAERS Safety Report 5889677-1 (Version None)
Quarter: 2008Q3

REPORT INFORMATION
  Report Type: 
  Country: None (occurrence: None)
  Receive Date: 20080919
  Receipt Date: 20080917
  Transmission Date: 20090109
  Serious: Yes (Death)
  Sender: FDA-Public Use
  Company Number: AR-JNJFOC-20080904217

PATIENT
  Age: 48 Year
  Sex: Female

DRUGS (5)
  1. INVEGA [Suspect]
     Indication: BIPOLAR I DISORDER
     Route: 048
  2. QUETIAPINE [Concomitant]
  3. FLUNITRAZEPAM [Concomitant]
  4. LITHIUM CARBONATE [Concomitant]
  5. VALPROATE SODIUM [Concomitant]

REACTIONS (3)
  - ACUTE PULMONARY OEDEMA [None]
  - CARDIAC HYPERTROPHY [None]
  - COUGH [None]
